FAERS Safety Report 14852822 (Version 1)
Quarter: 2018Q2

REPORT INFORMATION
  Report Type: Spontaneous
  Country: FR (occurrence: FR)
  Receive Date: 20180507
  Receipt Date: 20180507
  Transmission Date: 20180711
  Serious: Yes (Hospitalization)
  Sender: FDA-Public Use
  Company Number: FR-PFIZER INC-2018178067

PATIENT
  Age: 17 Year
  Sex: Male
  Weight: 82 kg

DRUGS (6)
  1. PULMOZYME [Suspect]
     Active Substance: DORNASE ALFA
     Indication: CYSTIC FIBROSIS
     Dosage: 1 DF, 1X/DAY
     Route: 055
     Dates: start: 20110202
  2. AERIUS [Suspect]
     Active Substance: DESLORATADINE
     Dosage: UNK
     Route: 048
  3. SINGULAIR [Suspect]
     Active Substance: MONTELUKAST SODIUM
     Dosage: 1 DF, 1X/DAY
     Route: 048
     Dates: start: 20110515
  4. BACTRIM [Suspect]
     Active Substance: SULFAMETHOXAZOLE\TRIMETHOPRIM
     Indication: ANTIBIOTIC THERAPY
     Dosage: 2 DF, 1X/DAY
     Route: 048
     Dates: start: 20130225
  5. ZITHROMAX [Suspect]
     Active Substance: AZITHROMYCIN DIHYDRATE
     Indication: ANTIBIOTIC THERAPY
     Dosage: 3 DF, WEEKLY
     Route: 048
     Dates: start: 20110202
  6. PYOSTACINE [Suspect]
     Active Substance: PRISTINAMYCIN
     Indication: ANTIBIOTIC THERAPY
     Dosage: 1 DF, 1X/DAY
     Route: 048
     Dates: start: 201203

REACTIONS (1)
  - Gynaecomastia [Not Recovered/Not Resolved]

NARRATIVE: CASE EVENT DATE: 2015
